FAERS Safety Report 4749289-X (Version None)
Quarter: 2005Q3

REPORT INFORMATION
  Report Type: 
  Country: None (occurrence: None)
  Receive Date: 20050819
  Receipt Date: 20050809
  Transmission Date: 20060218
  Serious: Yes (Hospitalization)
  Sender: FDA-Public Use
  Company Number: 2005UW11838

PATIENT
  Age: 60 Year
  Sex: Male
  Weight: 90.7 kg

DRUGS (7)
  1. CRESTOR [Suspect]
     Indication: BLOOD CHOLESTEROL INCREASED
     Route: 048
     Dates: start: 20040301, end: 20041101
  2. CRESTOR [Suspect]
     Route: 048
     Dates: start: 20041101
  3. LANTUS [Concomitant]
  4. HUMALOG [Concomitant]
  5. AVALIDE [Concomitant]
  6. NORVASC [Concomitant]
  7. ALTACE [Concomitant]

REACTIONS (3)
  - BLOOD CREATINE PHOSPHOKINASE INCREASED [None]
  - MUSCLE SPASMS [None]
  - RENAL DISORDER [None]
